FAERS Safety Report 8904017 (Version 1)
Quarter: 2012Q4

REPORT INFORMATION
  Report Type: 
  Country: US (occurrence: US)
  Receive Date: 20121112
  Receipt Date: 20121112
  Transmission Date: 20130627
  Serious: No
  Sender: FDA-Public Use
  Company Number: US-VERTEX PHARMACEUTICAL INC.-2012-024339

PATIENT
  Sex: Male

DRUGS (3)
  1. TELAPREVIR [Suspect]
     Indication: HEPATITIS C
     Dosage: UNK
     Dates: start: 20120601, end: 20120824
  2. PEGASYS [Concomitant]
     Dosage: UNK
     Dates: start: 20120601
  3. RIBAVIRIN [Suspect]
     Indication: HEPATITIS C
     Dosage: UNK
     Dates: start: 20120601

REACTIONS (1)
  - Anaemia [Not Recovered/Not Resolved]
